FAERS Safety Report 8491538-9 (Version None)
Quarter: 2012Q3

REPORT INFORMATION
  Report Type: 
  Country: None (occurrence: None)
  Receive Date: 20120706
  Receipt Date: 20120627
  Transmission Date: 20120928
  Serious: Yes (Other)
  Sender: FDA-Public Use
  Company Number: FR-ASTRAZENECA-2012SE43488

PATIENT
  Age: 24361 Day
  Sex: Female

DRUGS (6)
  1. BETATOP [Concomitant]
     Route: 048
  2. LEXOMIL [Concomitant]
     Route: 048
  3. ZOLEDRONOC ACID [Suspect]
     Route: 042
     Dates: start: 20101201
  4. ZYMAD [Concomitant]
     Route: 048
  5. ARIMIDEX [Suspect]
     Indication: BREAST CANCER FEMALE
     Route: 048
     Dates: start: 20100401
  6. ACETAMINOPHEN [Concomitant]
     Route: 048

REACTIONS (1)
  - DEEP VEIN THROMBOSIS [None]
